FAERS Safety Report 7135480-4 (Version None)
Quarter: 2010Q4

REPORT INFORMATION
  Report Type: 
  Country: None (occurrence: None)
  Receive Date: 20101119
  Receipt Date: 20101112
  Transmission Date: 20110411
  Serious: Yes (Hospitalization)
  Sender: FDA-Public Use
  Company Number: TIF2010A00115

PATIENT
  Age: 65 Year
  Sex: Female

DRUGS (2)
  1. COMPETACT (PIOGLITAZONE HYDROCHLORIDE, METFORMIN HYDROCHLORIDE) [Suspect]
     Indication: TYPE 2 DIABETES MELLITUS
     Dates: start: 20101001, end: 20101014
  2. INSULIN (INSULIN) [Concomitant]

REACTIONS (3)
  - CARDIAC FAILURE [None]
  - FLUID RETENTION [None]
  - HYPERTENSION [None]
